FAERS Safety Report 7244845-1 (Version None)
Quarter: 2011Q1

REPORT INFORMATION
  Report Type: 
  Country: None (occurrence: None)
  Receive Date: 20110126
  Receipt Date: 20110124
  Transmission Date: 20110831
  Serious: No
  Sender: FDA-Public Use
  Company Number: US-PFIZER INC-2011017099

PATIENT
  Sex: Female
  Weight: 104.31 kg

DRUGS (3)
  1. ADVIL PM [Suspect]
     Indication: NASOPHARYNGITIS
     Dosage: UNK
     Dates: start: 20110124
  2. ADVIL PM [Suspect]
     Indication: HEADACHE
  3. PREDNISONE [Concomitant]
     Dosage: UNK

REACTIONS (2)
  - OVERDOSE [None]
  - HYPERHIDROSIS [None]
